FAERS Safety Report 7055628-X (Version None)
Quarter: 2010Q4

REPORT INFORMATION
  Report Type: 
  Country: None (occurrence: None)
  Receive Date: 20101021
  Receipt Date: 20101013
  Transmission Date: 20110411
  Serious: Yes (Other)
  Sender: FDA-Public Use
  Company Number: GB-NOVOPROD-316064

PATIENT
  Weight: 85 kg

DRUGS (11)
  1. VICTOZA [Suspect]
     Indication: TYPE 2 DIABETES MELLITUS
     Dosage: 0.6 MG, SINGLE
     Dates: start: 20100928, end: 20100928
  2. METFORMIN [Concomitant]
     Dosage: 2 G, UNK
  3. GLICLAZIDE [Concomitant]
     Dosage: 120 UNK, UNK, MR
  4. AVANDIA [Concomitant]
     Dosage: UNK
     Dates: end: 20100801
  5. ASPIRIN [Concomitant]
  6. BISOPROLOL [Concomitant]
  7. ESOMEPRAZOLE [Concomitant]
  8. FUROSEMIDE [Concomitant]
  9. SIMVASTATIN [Concomitant]
  10. SPIROLACTON [Concomitant]
  11. ACETAMINOPHEN AND CODEINE PHOSPHATE [Concomitant]

REACTIONS (3)
  - ASTHENIA [None]
  - DECREASED APPETITE [None]
  - DYSPNOEA [None]
